FAERS Safety Report 8777588 (Version 4)
Quarter: 2012Q4

REPORT INFORMATION
  Report Type: 
  Country: US (occurrence: US)
  Receive Date: 20120910
  Receipt Date: 20121120
  Transmission Date: 20130627
  Serious: Yes (Death, Life-Threatening, Hospitalization, Other)
  Sender: FDA-Public Use
  Company Number: US-ACTELION-A-NJ2012-71124

PATIENT
  Age: 62 Year
  Sex: Male

DRUGS (3)
  1. VENTAVIS [Suspect]
     Indication: PULMONARY ARTERIAL HYPERTENSION
     Dosage: 5 ?g, 6 times a day
     Route: 055
     Dates: start: 20120614, end: 20121110
  2. ASPIRIN [Concomitant]
  3. FLOLAN [Concomitant]
     Route: 055

REACTIONS (5)
  - Lung neoplasm malignant [Fatal]
  - Disease progression [Fatal]
  - Respiratory failure [Fatal]
  - Dyspnoea [Recovering/Resolving]
  - Chronic obstructive pulmonary disease [Recovering/Resolving]
